FAERS Safety Report 20820737 (Version 1)
Quarter: 2022Q2

REPORT INFORMATION
  Report Type: Spontaneous
  Country: US (occurrence: US)
  Receive Date: 20220512
  Receipt Date: 20220512
  Transmission Date: 20220721
  Serious: No
  Sender: FDA-Public Use
  Company Number: US-PFIZER INC-202200426938

PATIENT
  Age: 62 Year
  Sex: Female

DRUGS (1)
  1. XELJANZ XR [Suspect]
     Active Substance: TOFACITINIB CITRATE
     Dosage: 11 MG, 1X/DAY (11MG QD)
     Route: 048
     Dates: start: 20220117, end: 202202

REACTIONS (2)
  - Pain in jaw [Not Recovered/Not Resolved]
  - Mastication disorder [Not Recovered/Not Resolved]
